FAERS Safety Report 8770064 (Version 2)
Quarter: 2013Q1

REPORT INFORMATION
  Report Type: Report from Study
  Country: JP (occurrence: JP)
  Receive Date: 20120905
  Receipt Date: 20130212
  Transmission Date: 20140127
  Serious: Yes (Other)
  Sender: FDA-Public Use
  Company Number: JP-009507513-1208JPN004505

PATIENT
  Age: 64 Year
  Sex: Male
  Weight: 56 kg

DRUGS (7)
  1. REBETOL [Suspect]
     Indication: CHRONIC HEPATITIS C
     Dosage: 600 MG, QD
     Route: 048
     Dates: start: 20120507, end: 20120610
  2. REBETOL [Suspect]
     Dosage: 400 MG, QD
     Route: 048
     Dates: start: 20120611, end: 20120701
  3. REBETOL [Suspect]
     Dosage: 200 MG, QD
     Route: 048
     Dates: start: 20120702, end: 20120722
  4. REBETOL [Suspect]
     Dosage: 400 MG, QD
     Route: 048
     Dates: start: 20120723, end: 20120826
  5. REBETOL [Suspect]
     Dosage: 600 MG, QD
     Route: 048
     Dates: start: 20120827, end: 20121021
  6. PEGINTRON [Suspect]
     Indication: CHRONIC HEPATITIS C
     Dosage: 1.5 MICROGRAM PER KILOGRAM, QW
     Route: 058
     Dates: start: 20120507, end: 20121015
  7. TELAVIC [Suspect]
     Indication: CHRONIC HEPATITIS C
     Dosage: DAILY DOSE: 2250 MG, EVERY 8 HOURS
     Route: 048
     Dates: start: 20120507, end: 20120624

REACTIONS (2)
  - Hyperuricaemia [Recovering/Resolving]
  - Blood creatinine increased [Recovering/Resolving]
